FAERS Safety Report 21326036 (Version 2)
Quarter: 2022Q3

REPORT INFORMATION
  Report Type: Report from Study
  Country: CZ (occurrence: CZ)
  Receive Date: 20220913
  Receipt Date: 20220919
  Transmission Date: 20221027
  Serious: Yes (Life-Threatening, Hospitalization)
  Sender: FDA-Public Use
  Company Number: CZ-JNJFOC-20220921939

PATIENT
  Age: 7 Decade
  Sex: Male
  Weight: 114 kg

DRUGS (2)
  1. REMICADE [Suspect]
     Active Substance: INFLIXIMAB
     Indication: Psoriasis
     Route: 041
  2. BRODALUMAB [Concomitant]
     Active Substance: BRODALUMAB
     Dates: start: 20211116, end: 20220517

REACTIONS (1)
  - Oesophageal carcinoma [Not Recovered/Not Resolved]

NARRATIVE: CASE EVENT DATE: 20220820
